FAERS Safety Report 12136374 (Version 1)
Quarter: 2016Q1

REPORT INFORMATION
  Report Type: Spontaneous
  Country: US (occurrence: None)
  Receive Date: 20160301
  Receipt Date: 20160301
  Transmission Date: 20160526
  Serious: Yes (Disabling, Other)
  Sender: FDA-Public Use
  Company Number: None

PATIENT
  Age: 79 Year
  Sex: Female
  Weight: 59.42 kg

DRUGS (9)
  1. NEXIUM [Concomitant]
     Active Substance: ESOMEPRAZOLE MAGNESIUM
  2. VITAMIN B12 [Concomitant]
     Active Substance: CYANOCOBALAMIN
  3. GENERIC VALSARTAN/HCTZ 80/12.5 [Suspect]
     Active Substance: HYDROCHLOROTHIAZIDE\VALSARTAN
     Indication: HYPERTENSION
     Dosage: 1 PILL
     Route: 048
     Dates: start: 201308, end: 20150427
  4. VITAMIN D [Concomitant]
     Active Substance: CHOLECALCIFEROL
  5. METOPROLOL-TART [Concomitant]
  6. EMERGEN-C [Concomitant]
     Active Substance: VITAMINS
  7. VITAMIN B-6 [Concomitant]
     Active Substance: PYRIDOXINE
  8. PRADAXA [Concomitant]
     Active Substance: DABIGATRAN ETEXILATE MESYLATE
  9. HCTZ [Concomitant]
     Active Substance: HYDROCHLOROTHIAZIDE

REACTIONS (15)
  - Heart rate increased [None]
  - Headache [None]
  - Polyarteritis nodosa [None]
  - Fatigue [None]
  - Product substitution issue [None]
  - Swelling [None]
  - Palpitations [None]
  - Paraesthesia [None]
  - Chest pain [None]
  - Visual impairment [None]
  - Pruritus [None]
  - Rash [None]
  - Dyspnoea [None]
  - Transient ischaemic attack [None]
  - Hypoaesthesia [None]

NARRATIVE: CASE EVENT DATE: 201307
